FAERS Safety Report 7896020-5 (Version None)
Quarter: 2011Q4

REPORT INFORMATION
  Report Type: 
  Country: None (occurrence: None)
  Receive Date: 20111106
  Receipt Date: 20110902
  Transmission Date: 20120403
  Serious: No
  Sender: FDA-Public Use
  Company Number: US-AMGEN-USASP2011045351

PATIENT
  Sex: Female

DRUGS (4)
  1. LIPITOR [Concomitant]
     Dosage: 10 MG, UNK
  2. ENBREL [Suspect]
     Indication: PRODUCT USED FOR UNKNOWN INDICATION
     Dosage: 50 MG, QWK
  3. NORVASC [Concomitant]
     Dosage: 10 MG, UNK
  4. MULTI-VITAMINS [Concomitant]
     Dosage: UNK

REACTIONS (1)
  - HEADACHE [None]
